FAERS Safety Report 6598715-2 (Version None)
Quarter: 2010Q1

REPORT INFORMATION
  Report Type: 
  Country: None (occurrence: None)
  Receive Date: 20100224
  Receipt Date: 20100105
  Transmission Date: 20100710
  Serious: Yes (Death)
  Sender: FDA-Public Use
  Company Number: US-TYCO HEALTHCARE/MALLINCKRODT-T201000478

PATIENT
  Age: 63 Year
  Sex: Male

DRUGS (13)
  1. OXYCODONE [Suspect]
     Route: 048
  2. AMITRIPTYLINE HCL [Suspect]
     Route: 048
  3. PROMETHAZINE [Suspect]
     Route: 048
  4. MIRTAZAPINE [Suspect]
     Route: 048
  5. CLONAZEPAM [Suspect]
     Route: 048
  6. ATENOLOL [Suspect]
     Route: 048
  7. PRAZOSIN HYDROCHLORIDE [Suspect]
     Route: 048
  8. TRAZODONE [Suspect]
     Route: 048
  9. NIACIN [Suspect]
     Route: 048
  10. PRAVACHOL [Suspect]
     Route: 048
  11. GABAPENTIN [Suspect]
     Route: 048
  12. UNKNOWN DRUG [Suspect]
     Route: 048
  13. VENLAFAXINE [Suspect]
     Route: 048

REACTIONS (2)
  - CARDIO-RESPIRATORY ARREST [None]
  - COMPLETED SUICIDE [None]
